FAERS Safety Report 24040443 (Version 1)
Quarter: 2024Q3

REPORT INFORMATION
  Report Type: Spontaneous
  Country: US (occurrence: US)
  Receive Date: 20240702
  Receipt Date: 20240702
  Transmission Date: 20241017
  Serious: No
  Sender: PERRIGO
  Company Number: US-PERRIGO-23US012952

PATIENT
  Age: 71 Year
  Sex: Female
  Weight: 61.678 kg

DRUGS (1)
  1. MICONAZOLE 1 [Suspect]
     Active Substance: MICONAZOLE NITRATE
     Indication: Vulvovaginal discomfort
     Dosage: 1200 MG, SINGLE
     Route: 067
     Dates: start: 202311, end: 202311

REACTIONS (3)
  - Vulvovaginal pain [Recovered/Resolved]
  - Vulvovaginal discomfort [Recovered/Resolved]
  - Drug ineffective [Recovered/Resolved]

NARRATIVE: CASE EVENT DATE: 20231101
